FAERS Safety Report 7555717-7 (Version None)
Quarter: 2011Q2

REPORT INFORMATION
  Report Type: 
  Country: None (occurrence: None)
  Receive Date: 20110617
  Receipt Date: 20110607
  Transmission Date: 20111010
  Serious: Yes (Other)
  Sender: FDA-Public Use
  Company Number: JP-MERCK-1104USA02706

PATIENT
  Age: 78 Year
  Sex: Male
  Weight: 52 kg

DRUGS (13)
  1. ACTOS [Concomitant]
     Route: 048
  2. AMARYL [Concomitant]
     Route: 048
     Dates: start: 20110221, end: 20110313
  3. VASOTEC [Concomitant]
     Route: 048
  4. URIEF [Concomitant]
     Route: 048
  5. NATRIX [Concomitant]
     Route: 048
  6. ASPIRIN [Concomitant]
     Route: 048
  7. PLETAL [Concomitant]
     Route: 048
  8. HALCION [Concomitant]
     Route: 048
  9. CONIEL [Concomitant]
     Route: 048
  10. JANUVIA [Suspect]
     Route: 048
     Dates: start: 20110212, end: 20110313
  11. WARFARIN POTASSIUM [Concomitant]
     Route: 048
  12. RABEPRAZOLE SODIUM [Concomitant]
     Route: 048
  13. OLMESARTAN MEDOXOMIL [Concomitant]
     Route: 048

REACTIONS (1)
  - PANCYTOPENIA [None]
